FAERS Safety Report 5384935-1 (Version None)
Quarter: 2007Q3

REPORT INFORMATION
  Report Type: 
  Country: None (occurrence: None)
  Receive Date: 20070709
  Receipt Date: 20070625
  Transmission Date: 20080115
  Serious: Yes (Death)
  Sender: FDA-Public Use
  Company Number: T200700734

PATIENT
  Age: 39 Year
  Sex: Male

DRUGS (7)
  1. METHADOSE [Suspect]
  2. MORPHINE [Suspect]
  3. COCAINE (COCAINE) [Suspect]
  4. ANTIDEPRESSANTS [Suspect]
  5. BARBITURATES [Suspect]
  6. OPIATES [Suspect]
  7. CANNABIS (CANNABIS SATIVA) [Suspect]

REACTIONS (2)
  - DRUG SCREEN POSITIVE [None]
  - ROAD TRAFFIC ACCIDENT [None]
